FAERS Safety Report 6827174-7 (Version None)
Quarter: 2010Q3

REPORT INFORMATION
  Report Type: 
  Country: None (occurrence: None)
  Receive Date: 20100709
  Receipt Date: 20100701
  Transmission Date: 20110219
  Serious: Yes (Other)
  Sender: FDA-Public Use
  Company Number: US-ABBOTT-10P-163-0654949-00

PATIENT
  Sex: Female
  Weight: 66.284 kg

DRUGS (6)
  1. HUMIRA [Suspect]
     Indication: RHEUMATOID ARTHRITIS
     Dates: start: 20080101, end: 20100501
  2. HUMIRA [Suspect]
     Dates: start: 20100701
  3. KLONOPIN [Concomitant]
     Indication: ANXIETY
     Dates: start: 19950101
  4. OXYCONTIN [Concomitant]
     Indication: ARTHRALGIA
     Dates: start: 20080101
  5. AMBIEN [Concomitant]
     Indication: INSOMNIA
  6. KAPIDEX [Concomitant]
     Indication: GASTROOESOPHAGEAL REFLUX DISEASE
     Dates: start: 20100601

REACTIONS (8)
  - BREAST MASS [None]
  - HEPATIC LESION [None]
  - INJECTION SITE SWELLING [None]
  - INJECTION SITE WARMTH [None]
  - LYMPHADENOPATHY [None]
  - PITUITARY TUMOUR [None]
  - THYROID NEOPLASM [None]
  - VISUAL FIELD DEFECT [None]
